FAERS Safety Report 5310265-X (Version None)
Quarter: 2007Q2

REPORT INFORMATION
  Report Type: 
  Country: None (occurrence: None)
  Receive Date: 20070427
  Receipt Date: 20070420
  Transmission Date: 20071010
  Serious: Yes (Death, Other)
  Sender: FDA-Public Use
  Company Number: US-SHR-US-2007-014659

PATIENT
  Age: 58 Year
  Sex: Female

DRUGS (5)
  1. CAMPATH [Suspect]
     Indication: BONE MARROW CONDITIONING REGIMEN
  2. TACROLIMUS [Concomitant]
     Indication: PROPHYLAXIS AGAINST GRAFT VERSUS HOST DISEASE
  3. METHYLPREDNISOLONE 16MG TAB [Concomitant]
     Indication: GRAFT VERSUS HOST DISEASE
  4. FLUDARABINE [Concomitant]
     Indication: BONE MARROW CONDITIONING REGIMEN
  5. MELPHALAN [Concomitant]
     Indication: BONE MARROW CONDITIONING REGIMEN

REACTIONS (2)
  - DEATH [None]
  - ENCEPHALITIS HERPES [None]
